FAERS Safety Report 6237182-5 (Version None)
Quarter: 2009Q2

REPORT INFORMATION
  Report Type: 
  Country: None (occurrence: None)
  Receive Date: 20090619
  Receipt Date: 20090608
  Transmission Date: 20091009
  Serious: Yes (Other)
  Sender: FDA-Public Use
  Company Number: GB-PFIZER INC-2009223867

PATIENT
  Age: 63 Year

DRUGS (11)
  1. CHAMPIX [Suspect]
     Indication: SMOKING CESSATION THERAPY
     Dosage: UNK
     Route: 048
     Dates: start: 20090507, end: 20090516
  2. ACETYLSALICYLIC ACID [Concomitant]
     Dosage: 75 MG, 1X/DAY
  3. ATORVASTATIN CALCIUM [Concomitant]
     Dosage: 40 MG, 1X/DAY
  4. ESCITALOPRAM [Concomitant]
     Dosage: 5 MG, 1X/DAY
  5. LUMIGAN [Concomitant]
     Dosage: UNK
  6. PARACETAMOL [Concomitant]
     Dosage: 500 MG, UNK
  7. SALBUTAMOL [Concomitant]
     Dosage: 100 UG, AS NEEDED
     Route: 055
  8. SALMETEROL [Concomitant]
     Dosage: UNK
     Route: 055
  9. VALSARTAN [Concomitant]
     Dosage: 80 MG, 1X/DAY
  10. VISCOTEARS [Concomitant]
     Dosage: UNK
  11. ZOPICLONE [Concomitant]
     Dosage: 3.75 MG, 1X/DAY

REACTIONS (6)
  - BALANCE DISORDER [None]
  - CONFUSIONAL STATE [None]
  - COORDINATION ABNORMAL [None]
  - DECREASED APPETITE [None]
  - FATIGUE [None]
  - VOMITING [None]
